FAERS Safety Report 22659806 (Version 1)
Quarter: 2023Q2

REPORT INFORMATION
  Report Type: Spontaneous
  Country: CN (occurrence: CN)
  Receive Date: 20230630
  Receipt Date: 20230630
  Transmission Date: 20230721
  Serious: No
  Sender: FDA-Public Use
  Company Number: CN-PFIZER INC-PV202300112699

PATIENT
  Age: 49 Year
  Sex: Male
  Weight: 85 kg

DRUGS (1)
  1. NIRMATRELVIR\RITONAVIR [Suspect]
     Active Substance: NIRMATRELVIR\RITONAVIR
     Indication: COVID-19 treatment
     Dosage: 1 DF, 2X/DAY
     Route: 048
     Dates: start: 20230616, end: 20230618

REACTIONS (2)
  - Abdominal pain [Recovered/Resolved]
  - Product use issue [Unknown]

NARRATIVE: CASE EVENT DATE: 20230616
